FAERS Safety Report 20886255 (Version 1)
Quarter: 2022Q2

REPORT INFORMATION
  Report Type: Report from Study
  Country: US (occurrence: US)
  Receive Date: 20220527
  Receipt Date: 20220527
  Transmission Date: 20220721
  Serious: Yes (Other)
  Sender: FDA-Public Use
  Company Number: US-CELGENE-USA-20220301049

PATIENT
  Age: 64 Year
  Sex: Male
  Weight: 80.74 kg

DRUGS (3)
  1. REVLIMID [Suspect]
     Active Substance: LENALIDOMIDE
     Indication: Plasma cell myeloma
     Dosage: 10 MILLIGRAM
     Route: 048
     Dates: start: 202102
  2. REVLIMID [Suspect]
     Active Substance: LENALIDOMIDE
     Indication: Plasma cell myeloma in remission
     Dosage: 15 MILLIGRAM
     Route: 048
     Dates: start: 20210308
  3. REVLIMID [Suspect]
     Active Substance: LENALIDOMIDE
     Dosage: 15 MILLIGRAM
     Route: 048
     Dates: start: 202108

REACTIONS (6)
  - Dizziness [Unknown]
  - Cold sweat [Unknown]
  - Fatigue [Unknown]
  - Thrombosis [Unknown]
  - Abdominal discomfort [Unknown]
  - Off label use [Unknown]
